FAERS Safety Report 7892452-X (Version None)
Quarter: 2011Q4

REPORT INFORMATION
  Report Type: 
  Country: None (occurrence: None)
  Receive Date: 20111104
  Receipt Date: 20111024
  Transmission Date: 20120403
  Serious: Yes (Other)
  Sender: FDA-Public Use
  Company Number: US-US-EMD SERONO, INC.-233264J10USA

PATIENT
  Sex: Female
  Weight: 93 kg

DRUGS (6)
  1. DETROL LA [Concomitant]
     Indication: NEUROGENIC BLADDER
     Route: 048
     Dates: start: 20070901
  2. LISINOPRIL [Concomitant]
     Indication: HYPERTENSION
  3. REBIF [Suspect]
     Indication: MULTIPLE SCLEROSIS
     Route: 058
     Dates: start: 20061229
  4. ESTRATEST [Concomitant]
     Route: 048
     Dates: start: 20070901
  5. DYAZIDE [Concomitant]
     Indication: HYPERTENSION
  6. MEDIZINE [Concomitant]
     Route: 048

REACTIONS (4)
  - HYPERSOMNIA [None]
  - NEPHROPATHY [None]
  - HYPERLIPIDAEMIA [None]
  - ASTHENIA [None]
